FAERS Safety Report 5037022-6 (Version None)
Quarter: 2006Q2

REPORT INFORMATION
  Report Type: 
  Country: None (occurrence: None)
  Receive Date: 20060601
  Receipt Date: 20060212
  Transmission Date: 20061013
  Serious: No
  Sender: FDA-Public Use
  Company Number: 2006PV008534

PATIENT
  Age: 65 Year
  Sex: Female
  Weight: 92.9874 kg

DRUGS (2)
  1. BYETTA [Suspect]
     Indication: DIABETES MELLITUS NON-INSULIN-DEPENDENT
     Dosage: 10 MCG;BID;SC
     Route: 058
     Dates: start: 20060101
  2. GLUCOVANCE [Concomitant]

REACTIONS (3)
  - BLOOD GLUCOSE INCREASED [None]
  - INJECTION SITE BRUISING [None]
  - INJECTION SITE INFECTION [None]
